FAERS Safety Report 13546983 (Version 5)
Quarter: 2018Q2

REPORT INFORMATION
  Report Type: Spontaneous
  Country: IT (occurrence: IT)
  Receive Date: 20170515
  Receipt Date: 20180405
  Transmission Date: 20180711
  Serious: Yes (Hospitalization)
  Sender: FDA-Public Use
  Company Number: IT-SA-2017SA085779

PATIENT
  Age: 34 Year
  Sex: Male
  Weight: 70 kg

DRUGS (3)
  1. MIRTAZAPINE. [Concomitant]
     Active Substance: MIRTAZAPINE
     Indication: INSOMNIA
     Route: 048
     Dates: start: 2006
  2. LEMTRADA [Suspect]
     Active Substance: ALEMTUZUMAB
     Indication: RELAPSING-REMITTING MULTIPLE SCLEROSIS
     Dosage: FREQUENCY : CYCLIC
     Route: 041
     Dates: start: 20160516, end: 20160520
  3. GILENYA [Concomitant]
     Active Substance: FINGOLIMOD HYDROCHLORIDE
     Route: 065
     Dates: start: 201602

REACTIONS (13)
  - Tachycardia [Unknown]
  - Palpitations [Unknown]
  - Autoimmune haemolytic anaemia [Recovered/Resolved]
  - Pallor [Unknown]
  - Thrombocytopenia [Recovering/Resolving]
  - Red blood cell count decreased [Unknown]
  - Hyperhidrosis [Unknown]
  - Proteinuria [Recovered/Resolved]
  - Haemoglobin decreased [Recovered/Resolved]
  - Nephropathy [Recovered/Resolved]
  - Albuminuria [Recovered/Resolved]
  - Asthenia [Unknown]
  - Hypercreatininaemia [Recovered/Resolved]

NARRATIVE: CASE EVENT DATE: 20170410
